FAERS Safety Report 7654540-2 (Version None)
Quarter: 2011Q3

REPORT INFORMATION
  Report Type: 
  Country: None (occurrence: None)
  Receive Date: 20110803
  Receipt Date: 20110729
  Transmission Date: 20111222
  Serious: Yes (Hospitalization)
  Sender: FDA-Public Use
  Company Number: GB-MERCK-1108GBR00003

PATIENT
  Age: 80 Year
  Sex: Female

DRUGS (9)
  1. SIMVASTATIN [Concomitant]
     Route: 048
  2. TOLTERODINE [Concomitant]
     Route: 065
  3. ASPIRIN [Concomitant]
     Route: 065
  4. OMEPRAZOLE [Concomitant]
     Route: 065
  5. CALCIUM CARBONATE AND CHOLECALCIFEROL [Concomitant]
     Route: 065
  6. AMITRIPTYLINE HYDROCHLORIDE [Concomitant]
     Route: 065
  7. ZOPICLONE [Concomitant]
     Route: 065
  8. FOSAMAX [Suspect]
     Route: 048
     Dates: end: 20110510
  9. PROPRANOLOL HYDROCHLORIDE [Concomitant]
     Route: 065

REACTIONS (3)
  - ABSCESS JAW [None]
  - OESOPHAGEAL STENOSIS [None]
  - OSTEONECROSIS OF JAW [None]
